FAERS Safety Report 16204215 (Version 2)
Quarter: 2019Q2

REPORT INFORMATION
  Report Type: Spontaneous
  Country: US (occurrence: US)
  Receive Date: 20190416
  Receipt Date: 20190425
  Transmission Date: 20190711
  Serious: Yes (Death, Life-Threatening, Hospitalization, Other)
  Sender: FDA-Public Use
  Company Number: US-SA-2019SA105849

PATIENT
  Age: 69 Year
  Sex: Male

DRUGS (1)
  1. RENAGEL [Suspect]
     Active Substance: SEVELAMER HYDROCHLORIDE
     Indication: HYPERPHOSPHATAEMIA
     Dosage: 250 MG
     Route: 048

REACTIONS (5)
  - Crystal deposit intestine [Fatal]
  - Anaemia [Fatal]
  - Colitis [Fatal]
  - Gastrointestinal necrosis [Fatal]
  - Lower gastrointestinal haemorrhage [Fatal]
